FAERS Safety Report 9305078 (Version 2)
Quarter: 2013Q3

REPORT INFORMATION
  Report Type: Report from Study
  Country: JP (occurrence: JP)
  Receive Date: 20130523
  Receipt Date: 20130704
  Transmission Date: 20140515
  Serious: Yes (Hospitalization)
  Sender: FDA-Public Use
  Company Number: JP-ROCHE-1226865

PATIENT
  Age: 84 Year
  Sex: Male

DRUGS (9)
  1. METHOXY POLYETHYLENE GLYCOL-EPOETIN BETA [Suspect]
     Indication: NEPHROGENIC ANAEMIA
     Route: 058
     Dates: start: 20121010
  2. AMLODIPINE BESILATE [Concomitant]
     Route: 048
  3. RABEPRAZOLE SODIUM [Concomitant]
     Route: 048
  4. BAYASPIRIN [Concomitant]
     Route: 048
  5. PREMINENT [Concomitant]
     Route: 048
  6. PLAVIX [Concomitant]
     Route: 048
  7. JANUVIA [Concomitant]
     Route: 048
  8. SIGMART [Concomitant]
     Route: 048
  9. ELCITONIN [Concomitant]
     Route: 030

REACTIONS (3)
  - Dizziness [Recovering/Resolving]
  - Colon cancer [Recovered/Resolved with Sequelae]
  - Hypertension [Unknown]
